FAERS Safety Report 19856688 (Version 1)
Quarter: 2021Q3

REPORT INFORMATION
  Report Type: Spontaneous
  Country: CN (occurrence: CN)
  Receive Date: 20210920
  Receipt Date: 20210920
  Transmission Date: 20211014
  Serious: Yes (Other)
  Sender: FDA-Public Use
  Company Number: CN-BAYER-2021-212273

PATIENT
  Age: 68 Year
  Sex: Female
  Weight: 50 kg

DRUGS (1)
  1. AVELOX [Suspect]
     Active Substance: MOXIFLOXACIN HYDROCHLORIDE
     Indication: RESPIRATORY TRACT INFECTION
     Dosage: 400 MG, QD
     Route: 041
     Dates: start: 20210823, end: 20210902

REACTIONS (4)
  - Depressed level of consciousness [Recovered/Resolved]
  - Abnormal behaviour [Recovered/Resolved]
  - Incoherent [Recovered/Resolved]
  - Tremor [Recovering/Resolving]

NARRATIVE: CASE EVENT DATE: 20210902
